FAERS Safety Report 8931656 (Version 2)
Quarter: 2013Q1

REPORT INFORMATION
  Report Type: Spontaneous
  Country: JP (occurrence: JP)
  Receive Date: 20121128
  Receipt Date: 20130116
  Transmission Date: 20140127
  Serious: Yes (Other)
  Sender: FDA-Public Use
  Company Number: JP-PFIZER INC-2012291670

PATIENT
  Age: 65 Year
  Sex: Male

DRUGS (5)
  1. ZYVOX [Suspect]
     Dosage: UNK
     Route: 041
  2. CLINDAMYCIN [Suspect]
     Indication: STAPHYLOCOCCAL INFECTION
  3. BAKTAR [Suspect]
     Indication: STAPHYLOCOCCAL INFECTION
  4. MEROPENEM [Concomitant]
  5. VANCOMYCIN [Concomitant]

REACTIONS (1)
  - Bone marrow failure [Recovering/Resolving]
